FAERS Safety Report 22390264 (Version 4)
Quarter: 2023Q2

REPORT INFORMATION
  Report Type: Spontaneous
  Country: US (occurrence: US)
  Receive Date: 20230531
  Receipt Date: 20230620
  Transmission Date: 20230721
  Serious: No
  Sender: FDA-Public Use
  Company Number: US-PFIZER INC-PV202300092127

PATIENT
  Age: 63 Year
  Sex: Female

DRUGS (2)
  1. IBRANCE [Suspect]
     Active Substance: PALBOCICLIB
     Dosage: 75 MG, 7 DAYS ON AND 7 DAYS OFF
     Dates: start: 202304, end: 202305
  2. IBRANCE [Suspect]
     Active Substance: PALBOCICLIB
     Dosage: 75 MG, 7 DAYS ON AND 7 DAYS OFF
     Dates: start: 202305, end: 20230516

REACTIONS (17)
  - White blood cell count decreased [Unknown]
  - Platelet count decreased [Unknown]
  - Malaise [Unknown]
  - Fatigue [Unknown]
  - Asthenia [Unknown]
  - Insomnia [Unknown]
  - Pain [Unknown]
  - Abdominal pain upper [Unknown]
  - Rash [Recovering/Resolving]
  - Rhinalgia [Recovering/Resolving]
  - Nausea [Unknown]
  - Vision blurred [Unknown]
  - Brain fog [Unknown]
  - Coordination abnormal [Unknown]
  - Diarrhoea [Unknown]
  - Muscle spasms [Unknown]
  - Off label use [Unknown]

NARRATIVE: CASE EVENT DATE: 20230101
